FAERS Safety Report 4333792-0 (Version None)
Quarter: 2004Q2

REPORT INFORMATION
  Report Type: 
  Country: None (occurrence: None)
  Receive Date: 20040406
  Receipt Date: 20040406
  Transmission Date: 20050107
  Serious: Yes (Death)
  Sender: FDA-Public Use
  Company Number: None

PATIENT
  Sex: Male

DRUGS (1)
  1. NUBAIN [Suspect]
     Indication: PAIN
     Dosage: 5 MG
     Dates: start: 20040305, end: 20040305

REACTIONS (2)
  - MATERNAL DRUGS AFFECTING FOETUS [None]
  - STILLBIRTH [None]
